FAERS Safety Report 5740506-6 (Version None)
Quarter: 2008Q2

REPORT INFORMATION
  Report Type: 
  Country: None (occurrence: None)
  Receive Date: 20080516
  Receipt Date: 20080407
  Transmission Date: 20081010
  Serious: Yes (Other)
  Sender: FDA-Public Use
  Company Number: BR-AVENTIS-200614673EU

PATIENT
  Age: 29 Year
  Sex: Female
  Weight: 59 kg

DRUGS (30)
  1. AMPLICTIL                          /00011901/ [Suspect]
     Indication: INSOMNIA
     Route: 048
     Dates: start: 20030101, end: 20040101
  2. AMPLICTIL                          /00011901/ [Suspect]
     Route: 048
     Dates: start: 20040101, end: 20060801
  3. AMPLICTIL                          /00011901/ [Suspect]
     Route: 048
     Dates: start: 20060801
  4. AMPLICTIL                          /00011901/ [Suspect]
     Route: 048
     Dates: end: 20061201
  5. AMPLICTIL                          /00011901/ [Suspect]
     Route: 048
     Dates: start: 20080121, end: 20080124
  6. AMPLICTIL                          /00011901/ [Suspect]
     Route: 048
     Dates: start: 20080217
  7. AMPLICTIL                          /00011901/ [Suspect]
     Route: 048
     Dates: start: 20080101, end: 20080101
  8. AMPLICTIL                          /00011901/ [Suspect]
     Route: 048
     Dates: start: 20080405
  9. FENERGAN                           /00033001/ [Suspect]
     Route: 048
     Dates: start: 20000101, end: 20080101
  10. FENERGAN                           /00033001/ [Suspect]
     Route: 048
     Dates: start: 20080301, end: 20080401
  11. FENERGAN                           /00033001/ [Suspect]
     Indication: INSOMNIA
     Route: 048
     Dates: start: 20000101, end: 20080101
  12. FENERGAN                           /00033001/ [Suspect]
     Route: 048
     Dates: start: 20080301, end: 20080401
  13. ALLEGRA [Suspect]
     Indication: RHINITIS
     Route: 048
     Dates: start: 20080301
  14. PONDERA [Suspect]
     Indication: DEPRESSION
     Route: 048
     Dates: start: 20060401, end: 20061214
  15. PONDERA [Suspect]
     Indication: PHOBIA
     Route: 048
     Dates: start: 20060401, end: 20061214
  16. RIVOTRIL [Suspect]
     Indication: ANXIETY
     Route: 048
  17. SYNTHROID [Suspect]
     Indication: HYPOTHYROIDISM
     Route: 048
     Dates: start: 20010101
  18. PAROXETINE HCL [Suspect]
     Indication: DEPRESSION
     Route: 048
     Dates: start: 20070901
  19. NOCTAL [Suspect]
     Indication: INSOMNIA
     Route: 048
     Dates: start: 20040901
  20. VACCINES [Suspect]
     Indication: CANDIDIASIS
     Route: 023
  21. BUDESONIDE [Suspect]
     Route: 045
     Dates: start: 20080301
  22. RINOSORO                           /01466401/ [Suspect]
     Dosage: DOSE: ONCE A DAY
     Route: 045
     Dates: start: 20080301
  23. RIVOTRIL [Concomitant]
     Indication: PHOBIA
     Route: 048
     Dates: start: 20030101, end: 20050101
  24. RIVOTRIL [Concomitant]
     Route: 048
     Dates: start: 20040101
  25. RIVOTRIL [Concomitant]
     Route: 048
     Dates: start: 20030101, end: 20050101
  26. RIVOTRIL [Concomitant]
     Route: 048
     Dates: start: 20040101
  27. BETAGAN [Concomitant]
     Indication: GLAUCOMA
     Dosage: DOSE: UNK
     Route: 047
     Dates: start: 20010101
  28. LORATADINE [Concomitant]
     Route: 048
  29. VACCINES [Concomitant]
     Route: 023
     Dates: start: 20071212
  30. FUROSEMIDE [Concomitant]
     Indication: URINARY RETENTION
     Route: 048
     Dates: start: 20050101

REACTIONS (22)
  - ABDOMINAL DISTENSION [None]
  - ANXIETY [None]
  - ASTHENIA [None]
  - BLOOD PRESSURE DECREASED [None]
  - BLOOD PROLACTIN INCREASED [None]
  - BREAST PAIN [None]
  - BREAST SWELLING [None]
  - DRUG DEPENDENCE [None]
  - DYSURIA [None]
  - FLUID RETENTION [None]
  - GALACTORRHOEA [None]
  - HEADACHE [None]
  - HYPOAESTHESIA [None]
  - INSOMNIA [None]
  - MENSTRUATION IRREGULAR [None]
  - MUSCULOSKELETAL PAIN [None]
  - PLATELET COUNT DECREASED [None]
  - TACHYCARDIA [None]
  - THINKING ABNORMAL [None]
  - TORTICOLLIS [None]
  - URINARY RETENTION [None]
  - WEIGHT INCREASED [None]
